FAERS Safety Report 9365003 (Version 2)
Quarter: 2013Q3

REPORT INFORMATION
  Report Type: Spontaneous
  Country: US (occurrence: US)
  Receive Date: 20130624
  Receipt Date: 20130725
  Transmission Date: 20140515
  Serious: No
  Sender: FDA-Public Use
  Company Number: US-PFIZER INC-2013186954

PATIENT
  Age: 17 Year
  Sex: Female
  Weight: 58.96 kg

DRUGS (1)
  1. RELPAX [Suspect]
     Indication: MIGRAINE
     Dosage: 40 MG, 1X/DAY
     Route: 048
     Dates: start: 20130620, end: 20130620

REACTIONS (5)
  - Drug hypersensitivity [Unknown]
  - Burning sensation [Unknown]
  - Headache [Unknown]
  - Chest pain [Unknown]
  - Decreased appetite [Unknown]
